FAERS Safety Report 8191882 (Version 6)
Quarter: 2012Q4

REPORT INFORMATION
  Report Type: 
  Country: TW (occurrence: TW)
  Receive Date: 20111020
  Receipt Date: 20121102
  Transmission Date: 20130627
  Serious: Yes (Death, Life-Threatening, Disabling, Other)
  Sender: FDA-Public Use
  Company Number: TW-SANOFI-AVENTIS-2011SA068416

PATIENT
  Age: 72 Year
  Sex: Male
  Weight: 58.2 kg

DRUGS (7)
  1. PLAVIX [Suspect]
     Indication: ACUTE CORONARY SYNDROME
     Route: 048
     Dates: start: 20111012, end: 20111012
  2. PLAVIX [Suspect]
     Indication: ACUTE CORONARY SYNDROME
     Route: 048
     Dates: start: 20111013, end: 20111013
  3. ACETYLSALICYLIC ACID [Suspect]
     Indication: ACUTE CORONARY SYNDROME
     Route: 048
     Dates: start: 20111012, end: 20111012
  4. ACETYLSALICYLIC ACID [Suspect]
     Indication: ACUTE CORONARY SYNDROME
     Route: 048
     Dates: start: 20111013, end: 20111013
  5. BLINDED THERAPY [Suspect]
     Indication: ACUTE CORONARY SYNDROME
     Route: 042
     Dates: start: 20111013, end: 20111013
  6. HEPARIN [Concomitant]
     Dosage: Dose:5950 unit(s)
     Route: 041
     Dates: start: 20111012, end: 20111013
  7. HEPARIN [Concomitant]
     Dosage: Dose:2700 unit(s)
     Route: 041
     Dates: start: 20111014, end: 20111014

REACTIONS (5)
  - Acute pulmonary oedema [Recovered/Resolved]
  - Multi-organ failure [Not Recovered/Not Resolved]
  - Pericardial haemorrhage [Fatal]
  - Upper gastrointestinal haemorrhage [Not Recovered/Not Resolved]
  - Thrombocytopenia [Not Recovered/Not Resolved]
